FAERS Safety Report 5026437-8 (Version None)
Quarter: 2006Q2

REPORT INFORMATION
  Report Type: 
  Country: None (occurrence: None)
  Receive Date: 20060426
  Receipt Date: 20060302
  Transmission Date: 20061013
  Serious: Yes (Other)
  Sender: FDA-Public Use
  Company Number: 2006032634

PATIENT
  Age: 65 Year
  Sex: Male
  Weight: 93.441 kg

DRUGS (7)
  1. LYRICA [Suspect]
     Indication: NEUROPATHY PERIPHERAL
     Dosage: 225 MG (75  MG, 3 IN 1 D)
     Dates: start: 20060302
  2. AMITRIPTYLINE HCL [Concomitant]
  3. AMBIEN [Concomitant]
  4. CEPHALEXIN [Concomitant]
  5. HYDROCODONE BITARTRATE + ACETAMINOPHEN [Concomitant]
  6. FUCA (CASCARA DRY EXTRACT, FRANGULA EXTRACT, FUCUS VESICOLOSUS) [Concomitant]
  7. METOPROLOL SUCCINATE [Concomitant]

REACTIONS (1)
  - DRY MOUTH [None]
